FAERS Safety Report 21026846 (Version 1)
Quarter: 2022Q2

REPORT INFORMATION
  Report Type: Spontaneous
  Country: HU (occurrence: HU)
  Receive Date: 20220630
  Receipt Date: 20220630
  Transmission Date: 20220720
  Serious: Yes (Hospitalization, Other)
  Sender: FDA-Public Use
  Company Number: HU-002147023-NVSC2022HU139064

PATIENT
  Age: 31 Year
  Sex: Female

DRUGS (6)
  1. CYTARABINE [Suspect]
     Active Substance: CYTARABINE
     Indication: Acute myeloid leukaemia
     Dosage: UNK (HIGH DOSE)
     Dates: start: 199907
  2. RUXOLITINIB [Suspect]
     Active Substance: RUXOLITINIB
     Indication: Myelofibrosis
     Dosage: 20 MG, BID (2X)
     Dates: start: 201908, end: 2021
  3. ASPIRIN [Concomitant]
     Active Substance: ASPIRIN
     Dosage: 100 MG, 1X/DAY (100 MG, QD)
     Dates: start: 201107
  4. HYDROXYUREA [Concomitant]
     Active Substance: HYDROXYUREA
     Dosage: 500 MG, 1X/DAY (500 MG, QD)
     Dates: start: 201107
  5. CYTARABINE [Concomitant]
     Active Substance: CYTARABINE
     Dosage: UNK (HIGH DOSE) (4X)
  6. MITOXANTRONE [Concomitant]
     Active Substance: MITOXANTRONE HYDROCHLORIDE
     Indication: Acute myeloid leukaemia
     Dosage: UNK
     Dates: start: 199907

REACTIONS (19)
  - Cough [Unknown]
  - Dyspnoea [Unknown]
  - Back pain [Unknown]
  - Pyrexia [Unknown]
  - Pulmonary congestion [Recovering/Resolving]
  - Haemoglobin decreased [Recovering/Resolving]
  - Second primary malignancy [Unknown]
  - Bone cancer [Unknown]
  - Hemianopia homonymous [Recovering/Resolving]
  - Pneumonia [Unknown]
  - Lung neoplasm malignant [Unknown]
  - Cytopenia [Recovered/Resolved]
  - Platelet count increased [Recovering/Resolving]
  - Lung disorder [Recovering/Resolving]
  - Blood lactate dehydrogenase increased [Unknown]
  - White blood cell count increased [Unknown]
  - Paresis [Recovering/Resolving]
  - Pulmonary mass [Not Recovered/Not Resolved]
  - Dysarthria [Recovering/Resolving]

NARRATIVE: CASE EVENT DATE: 20210101
